FAERS Safety Report 9068856 (Version 1)
Quarter: 2013Q1

REPORT INFORMATION
  Report Type: Spontaneous
  Country: GB (occurrence: None)
  Receive Date: 20130122
  Receipt Date: 20130122
  Transmission Date: 20140127
  Serious: Yes (Other)
  Sender: FDA-Public Use
  Company Number: GER/UKI/13/0027332

PATIENT
  Age: 32 Year
  Sex: Male
  Weight: 111.5 kg

DRUGS (1)
  1. FINASTERIDE (FINASTERIDE) [Suspect]
     Indication: ALOPECIA
     Dosage: 1 IN 1 D
     Route: 048
     Dates: start: 20120110, end: 20120118

REACTIONS (10)
  - Anxiety [None]
  - Depression [None]
  - Erectile dysfunction [None]
  - Amnesia [None]
  - Muscle atrophy [None]
  - Panic attack [None]
  - Testicular disorder [None]
  - Asthenia [None]
  - Weight decreased [None]
  - Deformity [None]
